FAERS Safety Report 7473822-0 (Version None)
Quarter: 2011Q2

REPORT INFORMATION
  Report Type: 
  Country: None (occurrence: None)
  Receive Date: 20110511
  Receipt Date: 20110511
  Transmission Date: 20111010
  Serious: Yes (Other)
  Sender: FDA-Public Use
  Company Number: NO-PFIZER INC-2011100645

PATIENT
  Age: 30 Year
  Sex: Female

DRUGS (1)
  1. VARENICLINE TARTRATE [Suspect]
     Indication: SMOKING CESSATION THERAPY
     Route: 048
     Dates: start: 20110408, end: 20110428

REACTIONS (5)
  - FATIGUE [None]
  - AFFECT LABILITY [None]
  - HEADACHE [None]
  - SUICIDAL IDEATION [None]
  - DIZZINESS [None]
